FAERS Safety Report 23822640 (Version 1)
Quarter: 2024Q2

REPORT INFORMATION
  Report Type: Spontaneous
  Country: FR (occurrence: None)
  Receive Date: 20240506
  Receipt Date: 20240506
  Transmission Date: 20240716
  Serious: Yes (Hospitalization, Other)
  Sender: FDA-Public Use
  Company Number: 2024A106414

PATIENT
  Age: 60 Year
  Sex: Female
  Weight: 70 kg

DRUGS (3)
  1. QUETIAPINE [Suspect]
     Active Substance: QUETIAPINE
     Indication: Anxiety
     Route: 048
     Dates: start: 2019, end: 20231105
  2. LAMICTAL [Suspect]
     Active Substance: LAMOTRIGINE
     Indication: Bipolar disorder
     Route: 048
     Dates: start: 20230922, end: 20231105
  3. ABILIFY [Suspect]
     Active Substance: ARIPIPRAZOLE
     Indication: Bipolar disorder
     Route: 048
     Dates: start: 20230922, end: 20231105

REACTIONS (10)
  - Somnolence [Recovered/Resolved]
  - Vertigo [Recovered/Resolved]
  - Confusional state [Recovered/Resolved]
  - Multisystem inflammatory syndrome [Unknown]
  - Rhabdomyolysis [Unknown]
  - Hypokalaemia [Unknown]
  - Acute kidney injury [Unknown]
  - Metabolic alkalosis [Unknown]
  - Thrombocytosis [Unknown]
  - Fall [Unknown]

NARRATIVE: CASE EVENT DATE: 20231108
